FAERS Safety Report 9995755 (Version 1)
Quarter: 2014Q1

REPORT INFORMATION
  Report Type: Spontaneous
  Country: US (occurrence: None)
  Receive Date: 20140221
  Receipt Date: 20140221
  Transmission Date: 20141002
  Serious: No
  Sender: FDA-Public Use
  Company Number: 1000053009

PATIENT
  Age: 85 Year
  Sex: Female

DRUGS (9)
  1. TUDORZA PRESSAIR [Suspect]
     Indication: CHRONIC OBSTRUCTIVE PULMONARY DISEASE
     Dosage: 800 UG (400 UG, 2 IN 1 D)
     Route: 055
     Dates: start: 20140107, end: 20140113
  2. IPRATROPIUM BROMIDE/ALBUTEROL (IPRATROPIUM BROMIDE, ALBUTEROL) [Concomitant]
  3. ADVAIR DISKUS [Concomitant]
  4. THYROID [Concomitant]
  5. PLAVIX (CLOPIDOGREL BISULFATE) [Concomitant]
  6. ALDACTONE (SPIRONOLACTONE) [Concomitant]
  7. ZYRTEC (CETIRIZINE HYDROCHLORIDE) [Concomitant]
  8. NEURONTIN (GABAPENTIN) [Concomitant]
  9. LEXAPRO (ESCITALOPRAM OXALATE) [Concomitant]

REACTIONS (2)
  - Nausea [None]
  - Insomnia [None]
